FAERS Safety Report 7322471-3 (Version None)
Quarter: 2011Q1

REPORT INFORMATION
  Report Type: 
  Country: None (occurrence: None)
  Receive Date: 20110125
  Receipt Date: 20101026
  Transmission Date: 20110831
  Serious: No
  Sender: FDA-Public Use
  Company Number: US-004011

PATIENT
  Age: 79 Year
  Sex: Male
  Weight: 102.0593 kg

DRUGS (4)
  1. COREG [Concomitant]
  2. FLONASE [Concomitant]
  3. FIRMAGON [Suspect]
  4. ENALAPRIL MALEATE [Concomitant]

REACTIONS (2)
  - HYPERHIDROSIS [None]
  - HOT FLUSH [None]
